FAERS Safety Report 9113023 (Version 1)
Quarter: 2013Q1

REPORT INFORMATION
  Report Type: Spontaneous
  Country: US (occurrence: US)
  Receive Date: 20130211
  Receipt Date: 20130211
  Transmission Date: 20140127
  Serious: No
  Sender: FDA-Public Use
  Company Number: US-PFIZER INC-2013052558

PATIENT
  Age: 33 Year
  Sex: Female

DRUGS (1)
  1. ADVIL [Suspect]
     Indication: PAIN
     Dosage: UNK,AS NEEDED
     Route: 048

REACTIONS (3)
  - Poor quality drug administered [Unknown]
  - Hypoaesthesia oral [Unknown]
  - Capsule physical issue [Unknown]
